FAERS Safety Report 8737934 (Version 2)
Quarter: 2013Q4

REPORT INFORMATION
  Report Type: Report from Study
  Country: JP (occurrence: JP)
  Receive Date: 20120823
  Receipt Date: 20131031
  Transmission Date: 20140711
  Serious: Yes (Other)
  Sender: FDA-Public Use
  Company Number: JP-009507513-1112USA00526

PATIENT
  Age: 66 Year
  Sex: Female

DRUGS (32)
  1. EMEND [Suspect]
     Indication: PROPHYLAXIS OF NAUSEA AND VOMITING
     Dosage: 125 MG, ONCE
     Route: 048
     Dates: start: 20100929, end: 20100929
  2. EMEND [Suspect]
     Dosage: 80 MG, QD
     Route: 048
     Dates: start: 20100930, end: 20101001
  3. EMEND [Suspect]
     Dosage: 125 MG, QD
     Route: 048
     Dates: start: 20101026, end: 20101026
  4. EMEND [Suspect]
     Dosage: 80 MG, QD
     Route: 048
     Dates: start: 20101027, end: 20101028
  5. EMEND [Suspect]
     Dosage: 125 MG, QD
     Route: 048
     Dates: start: 20101116, end: 20101116
  6. EMEND [Suspect]
     Dosage: 80 MG, QD
     Route: 048
     Dates: start: 20101117, end: 20101118
  7. EMEND [Suspect]
     Dosage: 125 MG, QD
     Route: 048
     Dates: start: 20101207, end: 20101207
  8. EMEND [Suspect]
     Dosage: 80 MG, QD
     Route: 048
     Dates: start: 20101208, end: 20101209
  9. FARMORUBICIN [Suspect]
     Indication: BREAST CANCER
     Dosage: |100 MG, ONCE
     Route: 042
     Dates: start: 20100929, end: 20100929
  10. FARMORUBICIN [Suspect]
     Dosage: 100 MG, QD
     Route: 042
     Dates: start: 20101026, end: 20101026
  11. FARMORUBICIN [Suspect]
     Dosage: 100 MG, QD
     Route: 042
     Dates: start: 20101116, end: 20101116
  12. FARMORUBICIN [Suspect]
     Dosage: 100 MG, QD
     Route: 042
     Dates: start: 20101207, end: 20101207
  13. ENDOXAN [Suspect]
     Indication: BREAST CANCER
     Dosage: 700 MG, ONCE
     Route: 042
     Dates: start: 20100929, end: 20101029
  14. ENDOXAN [Suspect]
     Dosage: 700 MG, QD
     Route: 042
     Dates: start: 20101026, end: 20101026
  15. ENDOXAN [Suspect]
     Dosage: 700 MG, QD
     Route: 042
     Dates: start: 20101116, end: 20101116
  16. ENDOXAN [Suspect]
     Dosage: 700 MG, QD
     Route: 042
     Dates: start: 20101207, end: 20101207
  17. DECADRON [Concomitant]
     Dosage: UNK, ONCE
     Dates: start: 20100930, end: 20101002
  18. DECADRON [Concomitant]
     Dosage: UNK
     Dates: start: 20101027, end: 20101029
  19. DECADRON [Concomitant]
     Dosage: UNK
     Dates: start: 20101117, end: 20101119
  20. DECADRON [Concomitant]
     Dates: start: 20101208, end: 20101210
  21. GRANISETRON HYDROCHLORIDE [Concomitant]
     Dosage: UNK, ONCE
     Dates: start: 20100929, end: 20100929
  22. GRANISETRON HYDROCHLORIDE [Concomitant]
     Dosage: UNK
     Dates: start: 20101026, end: 20101026
  23. GRANISETRON HYDROCHLORIDE [Concomitant]
     Dosage: UNK
     Dates: start: 20101116, end: 20101116
  24. GRANISETRON HYDROCHLORIDE [Concomitant]
     Dosage: UNK
     Dates: start: 20101207, end: 20101207
  25. DEXART [Concomitant]
     Dosage: UNK, ONCE
     Dates: start: 20100929, end: 20100929
  26. DEXART [Concomitant]
     Dosage: UNK
     Dates: start: 20101026, end: 20101026
  27. DEXART [Concomitant]
     Dosage: UNK
     Dates: start: 20101116, end: 20101116
  28. DEXART [Concomitant]
     Dates: start: 20101207, end: 20101207
  29. MUCOSTA [Concomitant]
     Dates: start: 20100929, end: 20101005
  30. MUCOSTA [Concomitant]
     Dosage: UNK
     Dates: start: 20101026, end: 20101101
  31. MUCOSTA [Concomitant]
     Dosage: UNK
     Dates: start: 20101116, end: 20101122
  32. MUCOSTA [Concomitant]
     Dosage: UNK
     Dates: start: 20101207, end: 20101213

REACTIONS (6)
  - White blood cell count decreased [Unknown]
  - Neutrophil count decreased [Unknown]
  - Stomatitis [Unknown]
  - Constipation [Unknown]
  - Febrile neutropenia [Unknown]
  - Anaemia [Unknown]
